FAERS Safety Report 7539008-6 (Version None)
Quarter: 2011Q2

REPORT INFORMATION
  Report Type: 
  Country: None (occurrence: None)
  Receive Date: 20110610
  Receipt Date: 20110607
  Transmission Date: 20111010
  Serious: No
  Sender: FDA-Public Use
  Company Number: US-BAYER-2011-049539

PATIENT
  Age: 64 Year
  Sex: Male

DRUGS (2)
  1. ADALAT CC [Suspect]
     Indication: HYPERTENSION
     Dosage: 30 MG, QD
     Route: 048
     Dates: start: 20100701
  2. ATENOLOL [Concomitant]
     Dosage: 50 MG

REACTIONS (2)
  - DIZZINESS [None]
  - BLOOD PRESSURE SYSTOLIC INCREASED [None]
